FAERS Safety Report 6450405-2 (Version None)
Quarter: 2009Q4

REPORT INFORMATION
  Report Type: 
  Country: None (occurrence: None)
  Receive Date: 20091120
  Receipt Date: 20091120
  Transmission Date: 20100525
  Serious: Yes (Hospitalization)
  Sender: FDA-Public Use
  Company Number: None

PATIENT
  Age: 65 Year
  Sex: Male
  Weight: 63.96 kg

DRUGS (1)
  1. ASPIRIN AND DIPYRIDAMOLE [Suspect]
     Indication: CARDIOVASCULAR DISORDER
     Dosage: 1 MG BID PO
     Route: 048
     Dates: start: 20080911, end: 20080916

REACTIONS (1)
  - GASTROINTESTINAL ULCER [None]
